FAERS Safety Report 6313619-8 (Version None)
Quarter: 2009Q3

REPORT INFORMATION
  Report Type: 
  Country: None (occurrence: None)
  Receive Date: 20090814
  Receipt Date: 20090805
  Transmission Date: 20100115
  Serious: Yes (Other)
  Sender: FDA-Public Use
  Company Number: GXKR2009GB08927

PATIENT
  Age: 79 Year
  Sex: Male

DRUGS (19)
  1. CEFUROXIME [Suspect]
     Indication: CATARACT OPERATION
     Dosage: 250 MG
     Dates: start: 20080319, end: 20090319
  2. EPINEPHRINE [Suspect]
     Indication: CATARACT OPERATION
     Dates: start: 20060319, end: 20090319
  3. PHENYLEPHRINE (PHENYLEPHRINE) 10% [Suspect]
     Indication: CATARACT OPERATION
     Dates: start: 20080319, end: 20080319
  4. SODIUM HYALURONATE (HYALURONATE SODIUM) [Suspect]
     Indication: CATARACT OPERATION
     Dates: start: 20080319, end: 20080319
  5. ASPIRIN [Concomitant]
  6. ATENOLOL [Concomitant]
  7. CYCLOPENTOLATE (CYCLOPENTOLATE) [Concomitant]
  8. ACETAZOLAMIDE [Concomitant]
  9. GLICLAZIDE (GLICLAZIDE) [Concomitant]
  10. HYALASE (HYALURONIDASE) [Concomitant]
  11. LIDOCAINE [Concomitant]
  12. MAXITROL (DEXAMETHASONE, NEOMYCIN SULFATE, POLYMYXIN B SULFATE) [Concomitant]
  13. METFORMIN HCL [Concomitant]
  14. PHENYLEPHRINE (PHENYLEPHRINE) [Concomitant]
  15. POVIDONE IODINE [Concomitant]
  16. RAMIPRIL [Concomitant]
  17. SIMVASTATIN [Concomitant]
  18. DICLOFENAC SODIUM [Concomitant]
  19. WATER FOR INJECTION (WATER FOR INJECTION) [Concomitant]

REACTIONS (4)
  - EXPOSURE TO TOXIC AGENT [None]
  - MACULOPATHY [None]
  - RETINOGRAM ABNORMAL [None]
  - VISUAL ACUITY REDUCED [None]
